FAERS Safety Report 6578826-8 (Version None)
Quarter: 2010Q1

REPORT INFORMATION
  Report Type: 
  Country: None (occurrence: None)
  Receive Date: 20100202
  Receipt Date: 20100120
  Transmission Date: 20100710
  Serious: Yes (Hospitalization)
  Sender: FDA-Public Use
  Company Number: 2010010072

PATIENT
  Age: 81 Year
  Sex: Male

DRUGS (10)
  1. TORSEMIDE [Suspect]
     Dosage: 10-5-0 MG (2 IN 1 D), ORAL
     Route: 048
  2. CIPROFLOXACIN HCL [Suspect]
     Dosage: ORAL
     Route: 048
     Dates: start: 20091212, end: 20091216
  3. PRAMIPEXOLE DIHYDROCHLORIDE [Concomitant]
  4. ALLOPURINOL [Concomitant]
  5. ASPIRIN [Concomitant]
  6. BISOPROLOL FUMARATE [Concomitant]
  7. MIRTAZAPINE [Concomitant]
  8. EXELON [Concomitant]
  9. LEVODOPA 100/25 (LEVODOPA, CARBIDOPA) [Concomitant]
  10. ENOXAPARIN SODIUM [Concomitant]

REACTIONS (2)
  - CLOSTRIDIUM DIFFICILE COLITIS [None]
  - DRUG INTERACTION [None]
